FAERS Safety Report 10011277 (Version 3)
Quarter: 2014Q2

REPORT INFORMATION
  Report Type: Spontaneous
  Country: DE (occurrence: None)
  Receive Date: 20140312
  Receipt Date: 20140528
  Transmission Date: 20141212
  Serious: Yes (Death, Other)
  Sender: FDA-Public Use
  Company Number: 1403-0451

PATIENT
  Age: 83 Year
  Sex: 0

DRUGS (6)
  1. EYELEA [Suspect]
     Indication: AGE-RELATED MACULAR DEGENERATION
     Route: 031
     Dates: start: 20131213
  2. IODINE (IODINE) [Concomitant]
  3. TAREG (VALSARTAN) [Concomitant]
  4. SEROPLEX (ESCITALOPRAM OXALATE) [Concomitant]
  5. VENTOLINE /00139501/ (SALBUTAMOL) [Concomitant]
  6. PREVISCAN/00261401/ (PENTOXFYLLINE) [Concomitant]

REACTIONS (9)
  - Death [None]
  - Cardio-respiratory arrest [None]
  - Multi-organ failure [None]
  - Malaise [None]
  - Vomiting [None]
  - Metabolic acidosis [None]
  - Aspartate aminotransferase increased [None]
  - Pneumonia aspiration [None]
  - General physical health deterioration [None]
